FAERS Safety Report 12977417 (Version 2)
Quarter: 2016Q4

REPORT INFORMATION
  Report Type: Report from Study
  Country: BG (occurrence: BG)
  Receive Date: 20161128
  Receipt Date: 20161208
  Transmission Date: 20170207
  Serious: Yes (Other)
  Sender: FDA-Public Use
  Company Number: BG-AMGEN-BGRSL2016061851

PATIENT
  Age: 39 Year
  Sex: Male
  Weight: 75 kg

DRUGS (2)
  1. VECTIBIX [Suspect]
     Active Substance: PANITUMUMAB
     Indication: COLORECTAL CANCER METASTATIC
     Dosage: 400 MG, TWICE MONTHLY
     Route: 042
     Dates: start: 2015, end: 20160622
  2. VECTIBIX [Suspect]
     Active Substance: PANITUMUMAB
     Dosage: 400 MG, TWO TIMES A MONTH
     Route: 042
     Dates: start: 2016

REACTIONS (12)
  - Rash pustular [Not Recovered/Not Resolved]
  - Growth of eyelashes [Not Recovered/Not Resolved]
  - Onychoclasis [Not Recovered/Not Resolved]
  - Rash pruritic [Not Recovered/Not Resolved]
  - Eye irritation [Unknown]
  - Hair growth abnormal [Not Recovered/Not Resolved]
  - Haemorrhage [Recovered/Resolved]
  - Rash generalised [Recovering/Resolving]
  - Skin fissures [Not Recovered/Not Resolved]
  - Pruritus generalised [Not Recovered/Not Resolved]
  - Dry skin [Not Recovered/Not Resolved]
  - Alopecia [Not Recovered/Not Resolved]

NARRATIVE: CASE EVENT DATE: 20160511
